FAERS Safety Report 18206210 (Version 1)
Quarter: 2020Q3

REPORT INFORMATION
  Report Type: Spontaneous
  Country: CA (occurrence: CA)
  Receive Date: 20200827
  Receipt Date: 20200827
  Transmission Date: 20201103
  Serious: Yes (Hospitalization, Other)
  Sender: FDA-Public Use
  Company Number: CA-ASTRAZENECA-2020SF07791

PATIENT
  Age: 24 Year
  Sex: Male
  Weight: 52 kg

DRUGS (10)
  1. QUETIAPINE FUMARATE. [Suspect]
     Active Substance: QUETIAPINE FUMARATE
     Indication: PRODUCT USED FOR UNKNOWN INDICATION
     Route: 048
  2. CANNABIS SATIVA [Concomitant]
     Active Substance: CANNABIS SATIVA FLOWERING TOP
  3. SODIUM ALGINATE/SODIUM BICARBONATE [Concomitant]
     Active Substance: SODIUM ALGINATE\SODIUM BICARBONATE
  4. AZATHIOPRINE. [Concomitant]
     Active Substance: AZATHIOPRINE
     Dosage: 100.0MG UNKNOWN
  5. CLONAZEPAM. [Concomitant]
     Active Substance: CLONAZEPAM
  6. PREDNISONE. [Concomitant]
     Active Substance: PREDNISONE
     Route: 048
  7. VENLAFAXINE HYDROCHLORIDE. [Suspect]
     Active Substance: VENLAFAXINE HYDROCHLORIDE
     Indication: PRODUCT USED FOR UNKNOWN INDICATION
     Route: 065
  8. DILTIAZEM. [Concomitant]
     Active Substance: DILTIAZEM
  9. PREDNISONE. [Concomitant]
     Active Substance: PREDNISONE
     Route: 048
  10. AZATHIOPRINE. [Concomitant]
     Active Substance: AZATHIOPRINE
     Dosage: 50.0MG UNKNOWN

REACTIONS (10)
  - Agitation [Unknown]
  - Cough [Unknown]
  - Poor quality sleep [Unknown]
  - Chest pain [Unknown]
  - Anal incontinence [Unknown]
  - Crohn^s disease [Unknown]
  - Rectal fissure [Unknown]
  - Drug withdrawal syndrome [Unknown]
  - Odynophagia [Unknown]
  - Gallbladder polyp [Unknown]
